FAERS Safety Report 25839644 (Version 1)
Quarter: 2025Q3

REPORT INFORMATION
  Report Type: Spontaneous
  Country: US (occurrence: US)
  Receive Date: 20250924
  Receipt Date: 20250924
  Transmission Date: 20251020
  Serious: No
  Sender: ALCON
  Company Number: US-ALCON LABORATORIES-ALC2025US002856

PATIENT
  Sex: Female

DRUGS (2)
  1. CYCLOGYL [Suspect]
     Active Substance: CYCLOPENTOLATE HYDROCHLORIDE
     Indication: Dry eye
     Route: 047
  2. SYSTANE PRO PF [Suspect]
     Active Substance: PROPYLENE GLYCOL
     Indication: Dry eye
     Route: 047

REACTIONS (2)
  - Ocular discomfort [Recovering/Resolving]
  - Drug ineffective [Unknown]
